FAERS Safety Report 5262680-0 (Version None)
Quarter: 2007Q1

REPORT INFORMATION
  Report Type: 
  Country: None (occurrence: None)
  Receive Date: 20061218
  Receipt Date: 20060328
  Transmission Date: 20070707
  Serious: Yes (Other)
  Sender: FDA-Public Use
  Company Number: 2006043779

PATIENT
  Age: 24 Year
  Sex: Female

DRUGS (1)
  1. ARTHROTEC [Suspect]
     Indication: PLANTAR FASCIITIS
     Dosage: 75 MG (75 MG, 1 IN 1 D)
     Dates: start: 20060323

REACTIONS (5)
  - EYE PAIN [None]
  - EYE PRURITUS [None]
  - HYPERSENSITIVITY [None]
  - RHINORRHOEA [None]
  - URTICARIA [None]
